FAERS Safety Report 24015248 (Version 1)
Quarter: 2024Q2

REPORT INFORMATION
  Report Type: Spontaneous
  Country: GT (occurrence: GT)
  Receive Date: 20240626
  Receipt Date: 20240626
  Transmission Date: 20240715
  Serious: Yes (Other)
  Sender: FDA-Public Use
  Company Number: GT-002147023-NVSC2024GT132614

PATIENT
  Sex: Female

DRUGS (1)
  1. GLIVEC [Suspect]
     Active Substance: IMATINIB MESYLATE
     Indication: Chronic myeloid leukaemia
     Dosage: 400 MG (1 X 400 MG)
     Route: 065

REACTIONS (4)
  - Seizure [Unknown]
  - Renal failure [Unknown]
  - Blindness [Unknown]
  - Fall [Unknown]
